FAERS Safety Report 6487695-6 (Version None)
Quarter: 2009Q4

REPORT INFORMATION
  Report Type: 
  Country: None (occurrence: None)
  Receive Date: 20091209
  Receipt Date: 20091209
  Transmission Date: 20100525
  Serious: Yes (Hospitalization)
  Sender: FDA-Public Use
  Company Number: None

PATIENT
  Age: 92 Year
  Sex: Male
  Weight: 59.3 kg

DRUGS (11)
  1. IMURAN [Suspect]
     Indication: WRONG DRUG ADMINISTERED
     Dosage: 100MG DAILY PO RECENT
     Route: 048
  2. AMIODARONE HCL [Concomitant]
  3. ARICEPT [Concomitant]
  4. GABAPENTIN [Concomitant]
  5. GEMFIBROZIL [Concomitant]
  6. METOPROLOL [Concomitant]
  7. ROPINEROLE [Concomitant]
  8. ZETIA [Concomitant]
  9. VIT C [Concomitant]
  10. WARFARIN SODIUM [Concomitant]
  11. CASODEX [Concomitant]

REACTIONS (5)
  - IATROGENIC INJURY [None]
  - METABOLIC ACIDOSIS [None]
  - RENAL FAILURE ACUTE [None]
  - URINARY TRACT INFECTION [None]
  - WRONG DRUG ADMINISTERED [None]
